FAERS Safety Report 9064316 (Version 1)
Quarter: 2013Q1

REPORT INFORMATION
  Report Type: Spontaneous
  Country: US (occurrence: US)
  Receive Date: 20130213
  Receipt Date: 20130213
  Transmission Date: 20140127
  Serious: No
  Sender: FDA-Public Use
  Company Number: US-B.I. PHARMACEUTICALS,INC./RIDGEFIELD-2013-BI-03995BP

PATIENT
  Age: 39 None
  Sex: Female
  Weight: 70 kg

DRUGS (5)
  1. SPIRIVA [Suspect]
     Indication: CHRONIC OBSTRUCTIVE PULMONARY DISEASE
     Dosage: 18 MCG
     Route: 055
     Dates: start: 201209
  2. SPIRIVA [Suspect]
     Route: 048
     Dates: start: 20130211, end: 20130211
  3. PRENATAL VITAMIN [Concomitant]
     Route: 048
  4. VENTOLIN INHALER [Concomitant]
     Indication: ASTHMA
     Route: 055
  5. NEXIUM [Concomitant]
     Indication: GASTROOESOPHAGEAL REFLUX DISEASE
     Dosage: 40 MG
     Route: 048

REACTIONS (3)
  - Incorrect route of drug administration [Recovered/Resolved]
  - Pulmonary congestion [Not Recovered/Not Resolved]
  - Product quality issue [Unknown]
